FAERS Safety Report 13844139 (Version 1)
Quarter: 2017Q3

REPORT INFORMATION
  Report Type: Spontaneous
  Country: US (occurrence: US)
  Receive Date: 20170808
  Receipt Date: 20170808
  Transmission Date: 20171127
  Serious: No
  Sender: FDA-Public Use
  Company Number: US-PFIZER INC-2017336590

PATIENT
  Age: 45 Year
  Sex: Female

DRUGS (1)
  1. SUTENT [Suspect]
     Active Substance: SUNITINIB MALATE
     Dosage: 50 MG, CYCLIC; (TAKE 1 CAPSULE EVERY DAY FOR 4 WEEKS THEN 2 WEEKS OFF)
     Route: 048

REACTIONS (5)
  - Nasal discomfort [Unknown]
  - Oral pain [Unknown]
  - Rash generalised [Unknown]
  - Diarrhoea [Unknown]
  - Ageusia [Unknown]
